FAERS Safety Report 17001599 (Version 2)
Quarter: 2019Q4

REPORT INFORMATION
  Report Type: Spontaneous
  Country: US (occurrence: US)
  Receive Date: 20191106
  Receipt Date: 20191217
  Transmission Date: 20200122
  Serious: No
  Sender: FDA-Public Use
  Company Number: US-TOLMAR, INC.-19US000781

PATIENT

DRUGS (1)
  1. ELIGARD [Suspect]
     Active Substance: LEUPROLIDE ACETATE
     Indication: PRODUCT USE IN UNAPPROVED INDICATION
     Dosage: 45 MG
     Route: 065

REACTIONS (3)
  - Device leakage [Unknown]
  - Wrong technique in product usage process [Unknown]
  - Syringe issue [Unknown]
